FAERS Safety Report 9139265 (Version 1)
Quarter: 2013Q1

REPORT INFORMATION
  Report Type: Spontaneous
  Country: BR (occurrence: BR)
  Receive Date: 20130305
  Receipt Date: 20130305
  Transmission Date: 20140127
  Serious: Yes (Other)
  Sender: FDA-Public Use
  Company Number: PHHY2013BR020720

PATIENT
  Age: 67 Year
  Sex: Female

DRUGS (7)
  1. DIOVAN HCT [Suspect]
     Indication: HYPERTENSION
     Dosage: 1 DF, A DAY (VALS 160 MG / HYDR 12.5 MG)
     Route: 048
     Dates: start: 20121019
  2. VITAMIN E [Suspect]
     Indication: NERVOUSNESS
     Dosage: 400 MG, UNK
  3. VITAMIN E [Suspect]
     Indication: RASH MACULAR
  4. CHLOROQUINE [Concomitant]
     Indication: OSTEOARTHRITIS
     Dosage: 1 DF, A DAY (250 MG)
     Route: 048
  5. FLUOXETINE [Concomitant]
     Indication: DEPRESSION
     Dosage: 1 DF, A DAY (40 MG)
     Route: 048
  6. CIMICIFUGA RACEMOSA [Concomitant]
     Indication: HORMONE REPLACEMENT THERAPY
     Dosage: 1 DF, A DAY (160 MG)
     Route: 048
  7. INDOMETHACIN/PREDNIOSONE/ALUMINIUM HYDROXIDE [Concomitant]
     Indication: OSTEOARTHRITIS
     Dosage: 1 DF, A DAY

REACTIONS (6)
  - Eyelid oedema [Not Recovered/Not Resolved]
  - Rash macular [Recovered/Resolved]
  - Erythema [Recovering/Resolving]
  - Skin exfoliation [Unknown]
  - Pruritus generalised [Not Recovered/Not Resolved]
  - Nervousness [Recovering/Resolving]
